FAERS Safety Report 15932735 (Version 1)
Quarter: 2019Q1

REPORT INFORMATION
  Report Type: Spontaneous
  Country: BR (occurrence: BR)
  Receive Date: 20190207
  Receipt Date: 20190207
  Transmission Date: 20190417
  Serious: Yes (Hospitalization, Other)
  Sender: FDA-Public Use
  Company Number: BR-EMD SERONO-9069222

PATIENT
  Age: 43 Year
  Sex: Female

DRUGS (1)
  1. SAIZEN [Suspect]
     Active Substance: SOMATROPIN
     Indication: PRODUCT USED FOR UNKNOWN INDICATION
     Dosage: PERHAPS 9 CLICKS?OVER 10 YEARS OF USE.
     Route: 058

REACTIONS (7)
  - Decreased appetite [Recovering/Resolving]
  - Blood sodium increased [Recovering/Resolving]
  - Pneumonia [Recovering/Resolving]
  - Blood pressure decreased [Recovering/Resolving]
  - Gallbladder disorder [Unknown]
  - Gastrointestinal infection [Recovering/Resolving]
  - Depressed mood [Recovering/Resolving]

NARRATIVE: CASE EVENT DATE: 201811
